FAERS Safety Report 19209475 (Version 1)
Quarter: 2021Q2

REPORT INFORMATION
  Report Type: Spontaneous
  Country: US (occurrence: US)
  Receive Date: 20210503
  Receipt Date: 20210503
  Transmission Date: 20210717
  Serious: No
  Sender: FDA-Public Use
  Company Number: US-ROCHE-2558206

PATIENT
  Age: 78 Year
  Sex: Female

DRUGS (1)
  1. AVASTIN [Suspect]
     Active Substance: BEVACIZUMAB
     Indication: NEOVASCULAR AGE-RELATED MACULAR DEGENERATION
     Route: 050
     Dates: start: 20200127, end: 20200127

REACTIONS (18)
  - Fatigue [Recovering/Resolving]
  - Sinus disorder [Not Recovered/Not Resolved]
  - Rash [Not Recovered/Not Resolved]
  - Headache [Recovered/Resolved]
  - Alopecia [Recovered/Resolved]
  - Off label use [Unknown]
  - Rash macular [Recovered/Resolved]
  - Vision blurred [Not Recovered/Not Resolved]
  - Acne [Not Recovered/Not Resolved]
  - Arthralgia [Unknown]
  - Oedema [Recovered/Resolved]
  - Decreased appetite [Recovering/Resolving]
  - Weight increased [Not Recovered/Not Resolved]
  - Intentional product use issue [Unknown]
  - Nausea [Not Recovered/Not Resolved]
  - Gingival bleeding [Not Recovered/Not Resolved]
  - Mouth ulceration [Not Recovered/Not Resolved]
  - Complication associated with device [Not Recovered/Not Resolved]

NARRATIVE: CASE EVENT DATE: 20200127
